FAERS Safety Report 4545730-6 (Version None)
Quarter: 2005Q1

REPORT INFORMATION
  Report Type: 
  Country: None (occurrence: None)
  Receive Date: 20050103
  Receipt Date: 20050103
  Transmission Date: 20050727
  Serious: No
  Sender: FDA-Public Use
  Company Number: None

PATIENT
  Age: 47 Year
  Sex: Female
  Weight: 45.3597 kg

DRUGS (1)
  1. FACTIVE [Suspect]
     Indication: SINUSITIS
     Dosage: 320MG   1    ORAL
     Route: 048
     Dates: start: 20041231, end: 20041231

REACTIONS (2)
  - RASH PRURITIC [None]
  - SWELLING FACE [None]
